FAERS Safety Report 24703895 (Version 4)
Quarter: 2025Q1

REPORT INFORMATION
  Report Type: Report from Study
  Country: US (occurrence: US)
  Receive Date: 20241206
  Receipt Date: 20250216
  Transmission Date: 20250409
  Serious: Yes (Other)
  Sender: ABBVIE
  Company Number: US-ABBVIE-6031992

PATIENT
  Age: 75 Year
  Sex: Male
  Weight: 98 kg

DRUGS (12)
  1. HUMIRA [Suspect]
     Active Substance: ADALIMUMAB
     Indication: Rheumatoid arthritis
     Dosage: DRUG STOP DATE 2024?FORM STRENGTH: 40 MILLIGRAM
     Route: 058
     Dates: start: 20240327
  2. HUMIRA [Suspect]
     Active Substance: ADALIMUMAB
     Route: 058
     Dates: start: 20241211
  3. PREDNISONE [Concomitant]
     Active Substance: PREDNISONE
     Indication: Polymyalgia rheumatica
  4. DULOXETINE [Concomitant]
     Active Substance: DULOXETINE
     Indication: Depression
  5. FOLIC ACID [Concomitant]
     Active Substance: FOLIC ACID
     Indication: Product used for unknown indication
  6. LISINOPRIL [Concomitant]
     Active Substance: LISINOPRIL
     Indication: Blood pressure measurement
  7. GABAPENTIN [Concomitant]
     Active Substance: GABAPENTIN
     Indication: Neuropathy peripheral
     Dosage: 1800 MILLIGRAM
  8. WARFARIN [Concomitant]
     Active Substance: WARFARIN
     Indication: Product used for unknown indication
  9. METHOTREXATE [Concomitant]
     Active Substance: METHOTREXATE
     Indication: Rheumatoid arthritis
  10. DILTIAZEM [Concomitant]
     Active Substance: DILTIAZEM
     Indication: Heart rate increased
     Dosage: 120 MILLIGRAM
  11. COVID-19 vaccine [Concomitant]
     Indication: COVID-19 immunisation
     Route: 030
     Dates: start: 202410, end: 202410
  12. INFLUENZA VIRUS VACCINE [Concomitant]
     Active Substance: INFLUENZA VIRUS VACCINE
     Indication: Product used for unknown indication
     Dates: start: 202410, end: 202410

REACTIONS (12)
  - Loss of consciousness [Recovered/Resolved]
  - Respiration abnormal [Not Recovered/Not Resolved]
  - Visual impairment [Recovered/Resolved]
  - Nerve compression [Not Recovered/Not Resolved]
  - Sinus congestion [Recovering/Resolving]
  - Hypoaesthesia [Not Recovered/Not Resolved]
  - Discomfort [Recovering/Resolving]
  - Arthralgia [Recovering/Resolving]
  - COVID-19 [Recovered/Resolved]
  - Hyperaesthesia [Recovering/Resolving]
  - Gait disturbance [Recovering/Resolving]
  - Bursitis [Recovering/Resolving]

NARRATIVE: CASE EVENT DATE: 20240101
